FAERS Safety Report 4971336-0 (Version None)
Quarter: 2006Q2

REPORT INFORMATION
  Report Type: 
  Country: None (occurrence: None)
  Receive Date: 20060406
  Receipt Date: 20060324
  Transmission Date: 20061013
  Serious: Yes (Other)
  Sender: FDA-Public Use
  Company Number: 200611159GDS

PATIENT
  Age: 83 Year
  Sex: Male
  Weight: 98.6 kg

DRUGS (15)
  1. AVELOX [Suspect]
     Indication: PNEUMONIA
     Dosage: 400 MG, QD, INTRAVENOUS
     Route: 042
     Dates: start: 20060205, end: 20060209
  2. AMIODARONE HCL [Concomitant]
  3. DOCUSATE [Concomitant]
  4. ASPIRIN [Concomitant]
  5. ENOXAPARIN SODIUM [Concomitant]
  6. DILTIAZEM [Concomitant]
  7. GLYBURIDE [Concomitant]
  8. COMBIVENT [Concomitant]
  9. INSULIN HUMAN [Concomitant]
  10. DOPAMINE [Concomitant]
  11. FUROSEMIDE [Concomitant]
  12. RANITIDINE [Concomitant]
  13. ISOSOURCE [Concomitant]
  14. METHYLPREDNISONE SODIUM SUCCINATE [Concomitant]
  15. LASIX [Concomitant]

REACTIONS (1)
  - HYPOGLYCAEMIA [None]
